FAERS Safety Report 9586409 (Version 2)
Quarter: 2013Q4

REPORT INFORMATION
  Report Type: Spontaneous
  Country: FR (occurrence: FR)
  Receive Date: 20131003
  Receipt Date: 20131003
  Transmission Date: 20140711
  Serious: Yes (Disabling)
  Sender: FDA-Public Use
  Company Number: FR-JNJFOC-20130908901

PATIENT
  Age: 21 Year
  Sex: Female
  Weight: 78 kg

DRUGS (3)
  1. SIMPONI [Suspect]
     Indication: ANKYLOSING SPONDYLITIS
     Route: 058
     Dates: start: 20130712
  2. LYRICA [Concomitant]
     Route: 065
  3. CODOLIPRANE [Concomitant]
     Route: 065

REACTIONS (1)
  - Asthenia [Recovered/Resolved]
